FAERS Safety Report 6567113-X (Version None)
Quarter: 2010Q1

REPORT INFORMATION
  Report Type: 
  Country: None (occurrence: None)
  Receive Date: 20100127
  Receipt Date: 20100118
  Transmission Date: 20100710
  Serious: Yes (Hospitalization)
  Sender: FDA-Public Use
  Company Number: WAES 0912USA02776

PATIENT
  Age: 68 Year
  Sex: Male

DRUGS (6)
  1. PRINIVIL [Suspect]
     Dosage: /PO
     Route: 048
     Dates: start: 20070101, end: 20091123
  2. APIXABAN UNK [Suspect]
     Indication: THROMBOSIS PROPHYLAXIS
     Dosage: 2.5 MG/DAILY/PO
     Route: 048
     Dates: start: 20090909, end: 20091007
  3. ENOXAPARIN SODIUM [Suspect]
     Indication: THROMBOSIS PROPHYLAXIS
     Dosage: 40 MG/DAILY/SC
     Route: 058
     Dates: start: 20090909, end: 20090915
  4. PLACEBO (UNSPECIFIED) [Suspect]
     Indication: THROMBOSIS PROPHYLAXIS
     Dates: start: 20090909, end: 20090101
  5. ADVAIR DISKUS 100/50 [Concomitant]
  6. METFORMIN HYDROCHLORIDE [Concomitant]

REACTIONS (6)
  - ANGIOEDEMA [None]
  - DYSARTHRIA [None]
  - DYSPHAGIA [None]
  - PALATAL OEDEMA [None]
  - TONGUE DISORDER [None]
  - URTICARIA [None]
